FAERS Safety Report 9688940 (Version 1)
Quarter: 2013Q4

REPORT INFORMATION
  Report Type: Spontaneous
  Country: IT (occurrence: IT)
  Receive Date: 20131114
  Receipt Date: 20131114
  Transmission Date: 20140711
  Serious: Yes (Hospitalization)
  Sender: FDA-Public Use
  Company Number: PHHY2013IT128445

PATIENT
  Sex: Male

DRUGS (8)
  1. TAMSULOSIN [Suspect]
     Dates: start: 20120908, end: 20130907
  2. FUROSEMIDE [Suspect]
     Dates: start: 20120708, end: 20130907
  3. ACETYLSALICYLIC ACID [Suspect]
  4. CATAPRESS TTS [Suspect]
     Dosage: 1 DF, QW
     Route: 062
     Dates: start: 20120908, end: 20130907
  5. VASCOMAN [Suspect]
     Dosage: 20 MG, UNK
     Dates: start: 20120908, end: 20130907
  6. ARANESP [Concomitant]
  7. CALCITRIOL [Concomitant]
  8. ALLOPURINOL [Concomitant]

REACTIONS (2)
  - Syncope [Recovering/Resolving]
  - Orthostatic hypotension [Recovering/Resolving]
